FAERS Safety Report 9892036 (Version 1)
Quarter: 2014Q1

REPORT INFORMATION
  Report Type: Spontaneous
  Country: US (occurrence: US)
  Receive Date: 20140212
  Receipt Date: 20140212
  Transmission Date: 20141002
  Serious: No
  Sender: FDA-Public Use
  Company Number: US-PFIZER INC-2014037431

PATIENT
  Age: 56 Year
  Sex: Female

DRUGS (1)
  1. ADVIL COLD AND SINUS [Suspect]
     Indication: NASOPHARYNGITIS
     Dosage: UNK

REACTIONS (3)
  - Extrasystoles [Unknown]
  - Palpitations [Unknown]
  - Atrial tachycardia [Unknown]
